FAERS Safety Report 6685863-1 (Version None)
Quarter: 2010Q2

REPORT INFORMATION
  Report Type: 
  Country: None (occurrence: None)
  Receive Date: 20100419
  Receipt Date: 20100411
  Transmission Date: 20101027
  Serious: Yes (Other)
  Sender: FDA-Public Use
  Company Number: US-JNJFOC-20100109898

PATIENT
  Sex: Female
  Weight: 68.04 kg

DRUGS (5)
  1. INVEGA SUSTENNA [Suspect]
     Indication: SCHIZOPHRENIA
     Route: 030
  2. INVEGA SUSTENNA [Suspect]
     Dosage: ONCE EVERY 2 WEEKS FOR 2 DOSES, THEN ONCE MONTHLY
     Route: 030
  3. INVEGA SUSTENNA [Suspect]
     Indication: BIPOLAR DISORDER
     Route: 030
  4. INVEGA SUSTENNA [Suspect]
     Dosage: ONCE EVERY 2 WEEKS FOR 2 DOSES, THEN ONCE MONTHLY
     Route: 030
  5. KLONOPIN [Concomitant]
     Indication: DRUG USE FOR UNKNOWN INDICATION
     Route: 048

REACTIONS (6)
  - DIABETES MELLITUS [None]
  - HYPERTHYROIDISM [None]
  - INJECTION SITE REACTION [None]
  - MENSTRUATION IRREGULAR [None]
  - NAUSEA [None]
  - WEIGHT DECREASED [None]
